FAERS Safety Report 9845886 (Version 1)
Quarter: 2014Q1

REPORT INFORMATION
  Report Type: Spontaneous
  Country: US (occurrence: US)
  Receive Date: 20140127
  Receipt Date: 20140127
  Transmission Date: 20141002
  Serious: No
  Sender: FDA-Public Use
  Company Number: US-PFIZER INC-2014023372

PATIENT
  Age: 39 Year
  Sex: Female

DRUGS (5)
  1. VENLAFAXINE HCL [Suspect]
     Indication: ANXIETY
     Dosage: 75 MG, 1X/DAY
     Dates: start: 201303, end: 201307
  2. VENLAFAXINE HCL [Suspect]
     Indication: FIBROMYALGIA
  3. DIAZEPAM [Concomitant]
     Indication: SOMNOLENCE
     Dosage: UNK (1-3 PER MONTH)
  4. DIAZEPAM [Concomitant]
     Indication: ANXIETY
  5. IBUPROFEN [Concomitant]
     Dosage: UNK (NOT DAILY)

REACTIONS (8)
  - Motion sickness [Unknown]
  - Vomiting [Recovered/Resolved]
  - Malaise [Unknown]
  - Rash [Recovering/Resolving]
  - Rash pruritic [Recovering/Resolving]
  - Nausea [Recovered/Resolved]
  - Hypersensitivity [Unknown]
  - Off label use [Unknown]
